FAERS Safety Report 18210324 (Version 2)
Quarter: 2020Q3

REPORT INFORMATION
  Report Type: Spontaneous
  Country: US (occurrence: US)
  Receive Date: 20200829
  Receipt Date: 20200914
  Transmission Date: 20201103
  Serious: Yes (Other)
  Sender: FDA-Public Use
  Company Number: US-DRREDDYS-USA/USA/20/0126432

PATIENT
  Age: 26 Year
  Sex: Female

DRUGS (3)
  1. GEMCITABINE. [Suspect]
     Active Substance: GEMCITABINE
     Indication: OSTEOSARCOMA METASTATIC
     Dosage: 21?DAY CYCLES (DAYS 1 AND 8)
     Route: 042
  2. PEGFILGRASTIM [Concomitant]
     Active Substance: PEGFILGRASTIM
     Indication: OSTEOSARCOMA METASTATIC
  3. RIBOCICLIB. [Suspect]
     Active Substance: RIBOCICLIB
     Indication: OSTEOSARCOMA METASTATIC
     Dosage: (DAYS 8?14 INITIALLY, THEN INCREASED TO DAILY/CONTINUOUS DOSING AFTER THE FIRST CYCLE)

REACTIONS (3)
  - Oedema peripheral [Unknown]
  - Thrombocytopenia [Unknown]
  - Neutropenia [Unknown]
